FAERS Safety Report 6042526-3 (Version None)
Quarter: 2009Q1

REPORT INFORMATION
  Report Type: 
  Country: None (occurrence: None)
  Receive Date: 20090118
  Receipt Date: 20090106
  Transmission Date: 20090719
  Serious: Yes (Other)
  Sender: FDA-Public Use
  Company Number: FR-PFIZER INC-2009153221

PATIENT
  Sex: Male

DRUGS (12)
  1. CAMPTOSAR [Suspect]
     Indication: COLON NEOPLASM
     Dosage: UNK
     Dates: start: 20080422, end: 20080101
  2. FLUOROURACIL [Suspect]
     Indication: COLON NEOPLASM
     Dates: start: 20080422, end: 20080101
  3. ELVORINE [Suspect]
     Indication: COLON NEOPLASM
     Dates: start: 20080422, end: 20080101
  4. AVASTIN [Suspect]
     Indication: COLON NEOPLASM
     Dates: start: 20080422, end: 20080101
  5. NEBILOX [Concomitant]
  6. COAPROVEL [Concomitant]
  7. COVERSYL [Concomitant]
  8. KARDEGIC [Concomitant]
  9. PRAVASTATIN [Concomitant]
  10. GLUCOPHAGE [Concomitant]
  11. EUPRESSYL [Concomitant]
  12. FUROSEMIDE [Concomitant]

REACTIONS (4)
  - CARDIAC FAILURE [None]
  - OEDEMA [None]
  - PULMONARY HYPERTENSION [None]
  - WEIGHT INCREASED [None]
